FAERS Safety Report 6523962-5 (Version None)
Quarter: 2009Q4

REPORT INFORMATION
  Report Type: 
  Country: None (occurrence: None)
  Receive Date: 20091230
  Receipt Date: 20091230
  Transmission Date: 20100525
  Serious: Yes (Other)
  Sender: FDA-Public Use
  Company Number: None

PATIENT
  Age: 50 Year
  Sex: Female
  Weight: 53.5244 kg

DRUGS (1)
  1. NASACORT AQ [Suspect]
     Indication: HYPERSENSITIVITY
     Dosage: 1 SPRAY IN EACH NOSTRIL TWICE DAILY NOSE
     Route: 045
     Dates: start: 20070101

REACTIONS (7)
  - DYSPHONIA [None]
  - EAR DISORDER [None]
  - EAR PAIN [None]
  - INTRAOCULAR PRESSURE INCREASED [None]
  - NASAL CONGESTION [None]
  - ORAL FUNGAL INFECTION [None]
  - SPEECH DISORDER [None]
